FAERS Safety Report 25232693 (Version 1)
Quarter: 2025Q2

REPORT INFORMATION
  Report Type: Report from Study
  Country: CA (occurrence: CA)
  Receive Date: 20250424
  Receipt Date: 20250424
  Transmission Date: 20250717
  Serious: Yes (Hospitalization, Other)
  Sender: ABBVIE
  Company Number: CA-ABBVIE-6241404

PATIENT
  Age: 33 Year
  Sex: Female

DRUGS (2)
  1. SKYRIZI [Suspect]
     Active Substance: RISANKIZUMAB-RZAA
     Indication: Crohn^s disease
     Route: 058
  2. SKYRIZI [Suspect]
     Active Substance: RISANKIZUMAB-RZAA
     Indication: Product used for unknown indication
     Route: 042

REACTIONS (8)
  - Obstruction [Recovering/Resolving]
  - Obstruction [Unknown]
  - Ulcer [Unknown]
  - Extra dose administered [Unknown]
  - Intestinal anastomosis [Unknown]
  - Pain [Unknown]
  - Iron deficiency [Unknown]
  - Anastomotic stenosis [Unknown]

NARRATIVE: CASE EVENT DATE: 20230101
